FAERS Safety Report 5879294-1 (Version None)
Quarter: 2008Q3

REPORT INFORMATION
  Report Type: 
  Country: None (occurrence: None)
  Receive Date: 20080912
  Receipt Date: 20080829
  Transmission Date: 20090109
  Serious: Yes (Disabling)
  Sender: FDA-Public Use
  Company Number: DE-ASTRAZENECA-2008PK01939

PATIENT
  Age: 24956 Day
  Sex: Female
  Weight: 71 kg

DRUGS (1)
  1. ARIMIDEX [Suspect]
     Indication: BREAST CANCER
     Route: 048
     Dates: start: 20070815

REACTIONS (7)
  - ALOPECIA [None]
  - ARTHRALGIA [None]
  - DYSPNOEA [None]
  - EYE SWELLING [None]
  - FATIGUE [None]
  - HOT FLUSH [None]
  - WEIGHT INCREASED [None]
